FAERS Safety Report 4597134-8 (Version None)
Quarter: 2005Q1

REPORT INFORMATION
  Report Type: 
  Country: None (occurrence: None)
  Receive Date: 20050301
  Receipt Date: 20050210
  Transmission Date: 20050727
  Serious: No
  Sender: FDA-Public Use
  Company Number: A01200500379

PATIENT
  Age: 65 Year
  Sex: Male

DRUGS (7)
  1. ELOXATIN [Suspect]
     Indication: COLON CANCER METASTATIC
     Dosage: 85 MG/ M2 OTHER; 1 DAY - TIME TO ONSET : 1 WEEK
     Route: 042
     Dates: start: 20041214, end: 20041214
  2. ELOXATIN [Suspect]
     Indication: HEPATIC NEOPLASM MALIGNANT
     Dosage: 85 MG/ M2 OTHER; 1 DAY - TIME TO ONSET : 1 WEEK
     Route: 042
     Dates: start: 20041214, end: 20041214
  3. ELOXATIN [Suspect]
     Indication: METASTASES TO PERITONEUM
     Dosage: 85 MG/ M2 OTHER; 1 DAY - TIME TO ONSET : 1 WEEK
     Route: 042
     Dates: start: 20041214, end: 20041214
  4. TOTAL PARENTERAL FEEDING [Suspect]
  5. FLUOROURACIL [Concomitant]
  6. FOLINIC ACID [Concomitant]
  7. SANDOSTATINE (OCTREOTIDE) [Concomitant]

REACTIONS (9)
  - ALANINE AMINOTRANSFERASE INCREASED [None]
  - ASPARTATE AMINOTRANSFERASE INCREASED [None]
  - BLOOD ALKALINE PHOSPHATASE INCREASED [None]
  - BLOOD BILIRUBIN INCREASED [None]
  - BLOOD LACTATE DEHYDROGENASE INCREASED [None]
  - BLOOD POTASSIUM DECREASED [None]
  - BLOOD SODIUM DECREASED [None]
  - GAMMA-GLUTAMYLTRANSFERASE INCREASED [None]
  - HAEMOGLOBIN DECREASED [None]
